FAERS Safety Report 19924101 (Version 2)
Quarter: 2022Q2

REPORT INFORMATION
  Report Type: Spontaneous
  Country: US (occurrence: US)
  Receive Date: 20211006
  Receipt Date: 20220407
  Transmission Date: 20220720
  Serious: No
  Sender: FDA-Public Use
  Company Number: US-PFIZER INC-2021876060

PATIENT
  Age: 58 Year
  Sex: Female

DRUGS (2)
  1. IBRANCE [Suspect]
     Active Substance: PALBOCICLIB
     Indication: Breast cancer female
     Dosage: 100 MG, CYCLIC (QD X 21D WITH OR W/O FOOD FOLLOWED BY 7D OFF TREATMENT)
     Route: 048
     Dates: start: 20200528, end: 202108
  2. IBRANCE [Suspect]
     Active Substance: PALBOCICLIB
     Dosage: 100 MG
     Dates: start: 20210529

REACTIONS (6)
  - Somnolence [Unknown]
  - Diarrhoea [Unknown]
  - Oral pain [Unknown]
  - Nausea [Unknown]
  - Epistaxis [Unknown]
  - Arthralgia [Unknown]

NARRATIVE: CASE EVENT DATE: 20210802
